FAERS Safety Report 18184598 (Version 1)
Quarter: 2020Q3

REPORT INFORMATION
  Report Type: Spontaneous
  Country: US (occurrence: US)
  Receive Date: 20200824
  Receipt Date: 20200824
  Transmission Date: 20201103
  Serious: No
  Sender: FDA-Public Use
  Company Number: US-MSNLABS-2020MSNSPO00262

PATIENT
  Sex: Female

DRUGS (2)
  1. PREGABALIN CAPSULES 75 MG [Suspect]
     Active Substance: PREGABALIN
     Indication: NEUROPATHY PERIPHERAL
     Dosage: 1 CAPSULE IN MORNING, 2 CAPSULES AT NIGHT
     Route: 065
     Dates: start: 20200729
  2. PRAZODONE [Concomitant]
     Indication: PRODUCT USED FOR UNKNOWN INDICATION
     Route: 065

REACTIONS (5)
  - Burning sensation [Recovering/Resolving]
  - Feeling abnormal [Recovering/Resolving]
  - Product substitution issue [Unknown]
  - Drug ineffective [Unknown]
  - Pain in extremity [Recovering/Resolving]

NARRATIVE: CASE EVENT DATE: 20200729
